FAERS Safety Report 6517699-6 (Version None)
Quarter: 2009Q4

REPORT INFORMATION
  Report Type: 
  Country: None (occurrence: None)
  Receive Date: 20091218
  Receipt Date: 20091208
  Transmission Date: 20100525
  Serious: Yes (Other)
  Sender: FDA-Public Use
  Company Number: 2007AL004936

PATIENT
  Age: 81 Year
  Sex: Male

DRUGS (14)
  1. TRAMADOL HYDROCHLORIDE [Suspect]
     Dosage: 100 MG; QD
  2. BUTRANS [Concomitant]
  3. MAXIMOL [Concomitant]
  4. DICLOFENAC SODIUM [Concomitant]
  5. CITALOPRAM HYDROBROMIDE [Concomitant]
  6. ASPIRIN [Concomitant]
  7. PREDNISOLONE [Concomitant]
  8. ZOLPIDEM TARTRATE [Concomitant]
  9. TAMSULSOIN [Concomitant]
  10. AMINOPHYLLINE [Concomitant]
  11. RAMIPRIL [Concomitant]
  12. OMEPRAZOLE [Concomitant]
  13. SIMVASTATIN [Concomitant]
  14. PARACETAMOL [Concomitant]

REACTIONS (2)
  - PARALYSIS [None]
  - SOMNOLENCE [None]
